FAERS Safety Report 6168562-4 (Version None)
Quarter: 2009Q2

REPORT INFORMATION
  Report Type: 
  Country: None (occurrence: None)
  Receive Date: 20090427
  Receipt Date: 20090414
  Transmission Date: 20091009
  Serious: Yes (Death, Life-Threatening, Hospitalization)
  Sender: FDA-Public Use
  Company Number: IT-BRISTOL-MYERS SQUIBB COMPANY-14536510

PATIENT
  Age: 6 Year
  Sex: Male

DRUGS (11)
  1. DASATINIB [Suspect]
     Indication: LEUKAEMIA
     Dosage: FIRST DOSE: 11FEB09.
     Route: 048
     Dates: start: 20090211, end: 20090304
  2. CYCLOPHOSPHAMIDE [Suspect]
     Dates: start: 20090306, end: 20090306
  3. ETOPOSIDE [Suspect]
     Dates: start: 20090306, end: 20090306
  4. TRAMADOL HCL [Concomitant]
     Dates: start: 20090212, end: 20090306
  5. PREDNISONE [Concomitant]
     Dates: start: 20090211, end: 20090306
  6. ACYCLOVIR [Concomitant]
     Dates: start: 20090120, end: 20090306
  7. DESLORATADINE [Concomitant]
     Dates: start: 20090211, end: 20090306
  8. PREGABALIN [Concomitant]
     Dates: start: 20090203, end: 20090306
  9. CEFTAZIDIME [Concomitant]
     Dates: start: 20090306, end: 20090316
  10. MORPHINE [Concomitant]
     Dates: start: 20090306, end: 20090319
  11. OMEPRAZOLE [Concomitant]
     Dates: start: 20090307, end: 20090319

REACTIONS (7)
  - ARTHRALGIA [None]
  - BONE PAIN [None]
  - PNEUMONIA [None]
  - RENAL FAILURE [None]
  - RESPIRATORY FAILURE [None]
  - SEPSIS [None]
  - TUMOUR LYSIS SYNDROME [None]
